FAERS Safety Report 18325251 (Version 1)
Quarter: 2020Q3

REPORT INFORMATION
  Report Type: Spontaneous
  Country: US (occurrence: US)
  Receive Date: 20200929
  Receipt Date: 20200929
  Transmission Date: 20201103
  Serious: No
  Sender: FDA-Public Use
  Company Number: US-ASTRAZENECA-2020SF15924

PATIENT
  Age: 68 Year
  Sex: Female

DRUGS (2)
  1. FASENRA [Suspect]
     Active Substance: BENRALIZUMAB
     Dosage: UNKNOWN DOSE AND FREQUENCY
     Route: 058
     Dates: start: 20200824
  2. PREDNISONE. [Concomitant]
     Active Substance: PREDNISONE

REACTIONS (8)
  - Helminthic infection [Unknown]
  - Chills [Unknown]
  - Fatigue [Unknown]
  - Paraesthesia [Unknown]
  - Sarcoidosis [Unknown]
  - Weight decreased [Unknown]
  - Adrenal insufficiency [Unknown]
  - Lethargy [Unknown]

NARRATIVE: CASE EVENT DATE: 2020
